FAERS Safety Report 23201939 (Version 1)
Quarter: 2023Q4

REPORT INFORMATION
  Report Type: Report from Study
  Country: US (occurrence: US)
  Receive Date: 20231120
  Receipt Date: 20231120
  Transmission Date: 20240110
  Serious: Yes (Death, Other)
  Sender: FDA-Public Use
  Company Number: US-GILEAD-2023-0651682

PATIENT
  Age: 73 Year
  Sex: Male

DRUGS (1)
  1. TENOFOVIR ALAFENAMIDE [Suspect]
     Active Substance: TENOFOVIR ALAFENAMIDE
     Indication: Product used for unknown indication
     Dosage: 25 MG
     Route: 065
     Dates: start: 20221116

REACTIONS (1)
  - Death [Fatal]

NARRATIVE: CASE EVENT DATE: 20231117
